FAERS Safety Report 7134209-3 (Version None)
Quarter: 2010Q4

REPORT INFORMATION
  Report Type: 
  Country: None (occurrence: None)
  Receive Date: 20101203
  Receipt Date: 20101124
  Transmission Date: 20110411
  Serious: Yes (Disabling)
  Sender: FDA-Public Use
  Company Number: FR-AMGEN-FRASP2010006098

PATIENT

DRUGS (1)
  1. NPLATE [Suspect]
     Indication: PURPURA
     Dosage: UNK
     Route: 058
     Dates: start: 20101020

REACTIONS (3)
  - ARTHRALGIA [None]
  - ELECTROMYOGRAM ABNORMAL [None]
  - SOMNOLENCE [None]
